FAERS Safety Report 9296726 (Version 2)
Quarter: 2013Q2

REPORT INFORMATION
  Report Type: Spontaneous
  Country: US (occurrence: US)
  Receive Date: 20130517
  Receipt Date: 20130611
  Transmission Date: 20140414
  Serious: Yes (Hospitalization, Other)
  Sender: FDA-Public Use
  Company Number: US-PFIZER INC-2013149321

PATIENT
  Age: 69 Year
  Sex: Female
  Weight: 77.1 kg

DRUGS (3)
  1. ZYVOX [Suspect]
     Indication: PNEUMONIA
     Dosage: 600 MG, 2X/DAY
     Route: 048
     Dates: start: 20130501, end: 20130503
  2. ZYVOX [Suspect]
     Indication: PULMONARY FIBROSIS
  3. CELEXA [Suspect]
     Indication: DEPRESSION
     Dosage: 20 MG, Q DAY
     Route: 048
     Dates: start: 201304

REACTIONS (2)
  - Serotonin syndrome [Recovered/Resolved]
  - Mental status changes [Recovered/Resolved]
